FAERS Safety Report 9347111 (Version 1)
Quarter: 2013Q2

REPORT INFORMATION
  Report Type: Spontaneous
  Country: JP (occurrence: JP)
  Receive Date: 20130613
  Receipt Date: 20130613
  Transmission Date: 20140414
  Serious: Yes (Other)
  Sender: FDA-Public Use
  Company Number: JP-GLAXOSMITHKLINE-B0898366A

PATIENT
  Sex: Male

DRUGS (1)
  1. ALLERMIST [Suspect]
     Indication: RHINITIS ALLERGIC
     Route: 045

REACTIONS (2)
  - Furuncle [Unknown]
  - Application site erosion [Unknown]
